FAERS Safety Report 8226487-4 (Version None)
Quarter: 2012Q1

REPORT INFORMATION
  Report Type: 
  Country: None (occurrence: None)
  Receive Date: 20120322
  Receipt Date: 20120312
  Transmission Date: 20120608
  Serious: Yes (Hospitalization)
  Sender: FDA-Public Use
  Company Number: US-ASTRAZENECA-2010SE57777

PATIENT
  Age: 59 Year
  Sex: Male
  Weight: 90.7 kg

DRUGS (46)
  1. NEXIUM [Suspect]
     Route: 048
  2. SEROQUEL [Suspect]
     Indication: BIPOLAR DISORDER
     Route: 048
     Dates: start: 20100208
  3. SEROQUEL [Suspect]
     Route: 048
     Dates: start: 20100423
  4. SEROQUEL [Suspect]
     Dosage: TAKING 300 MG ONE AND 400 MG ONE AT NIGHT
     Route: 048
  5. SEROQUEL [Suspect]
     Dosage: TAKING 300 MG ONE AND 400 MG ONE AT NIGHT
     Route: 048
  6. SEROQUEL [Suspect]
     Route: 048
     Dates: start: 20100401
  7. SEROQUEL [Suspect]
     Route: 048
     Dates: start: 20100423
  8. SEROQUEL [Suspect]
     Route: 048
     Dates: start: 20100423
  9. SEROQUEL [Suspect]
     Route: 048
     Dates: start: 20100423
  10. GLIPIZIDE [Concomitant]
     Dosage: 2, 5 MG BID
  11. LEVOTHYROXINE SODIUM [Concomitant]
  12. EYE DROPS [Concomitant]
  13. SEROQUEL [Suspect]
     Route: 048
     Dates: start: 20100401
  14. LISINOPRIL [Concomitant]
     Route: 048
  15. LORAZEPAM [Concomitant]
     Indication: BIPOLAR DISORDER
  16. ATIVAN [Concomitant]
  17. BUTRIN [Concomitant]
  18. SEROQUEL [Suspect]
     Indication: DEPRESSION
     Route: 048
     Dates: start: 20100208
  19. SEROQUEL [Suspect]
     Indication: SLEEP DISORDER
     Route: 048
     Dates: start: 20100208
  20. FISH OIL [Concomitant]
  21. DEPAKOTE [Concomitant]
  22. SEROQUEL [Suspect]
     Dosage: TAKING 300 MG ONE AND 400 MG ONE AT NIGHT
     Route: 048
  23. LORAZEPAM [Concomitant]
  24. TOPAMAX [Concomitant]
  25. LUMIGAN [Concomitant]
     Dosage: OU, ONE DROP
  26. SEROQUEL [Suspect]
     Route: 048
     Dates: start: 20100208
  27. SEROQUEL [Suspect]
     Route: 048
     Dates: start: 20100423
  28. SEROQUEL [Suspect]
     Route: 048
     Dates: start: 20100423
  29. SEROQUEL [Suspect]
     Route: 048
     Dates: start: 20100423
  30. GLIPIZIDE [Concomitant]
  31. LEVOTHYROXINE SODIUM [Concomitant]
  32. SIMVASTATIN [Concomitant]
  33. WELLBUTRIN XL [Concomitant]
  34. SEROQUEL [Suspect]
     Route: 048
     Dates: start: 20100423
  35. CALCIUM CARBONATE [Concomitant]
  36. TOPAMAX [Concomitant]
     Indication: BIPOLAR DISORDER
     Dosage: TWICE A DAY
  37. GLICLAZIDE [Concomitant]
  38. IRON PILLS [Concomitant]
  39. IONPILL FERROUS SULFATE [Concomitant]
  40. NEXIUM [Suspect]
     Indication: GASTROOESOPHAGEAL REFLUX DISEASE
     Route: 048
  41. SEROQUEL [Suspect]
     Dosage: TAKING 300 MG ONE AND 400 MG ONE AT NIGHT
     Route: 048
  42. SEROQUEL [Suspect]
     Route: 048
     Dates: start: 20100401
  43. SEROQUEL [Suspect]
     Route: 048
     Dates: start: 20100401
  44. VIT C [Concomitant]
  45. JANUVIA [Concomitant]
  46. CENTRUM ULTRUM [Concomitant]

REACTIONS (28)
  - DIET REFUSAL [None]
  - PRURITUS [None]
  - NERVOUSNESS [None]
  - OFF LABEL USE [None]
  - BLOOD GLUCOSE INCREASED [None]
  - HEADACHE [None]
  - BLOOD GLUCOSE FLUCTUATION [None]
  - ERUCTATION [None]
  - WEIGHT INCREASED [None]
  - IMPAIRED SELF-CARE [None]
  - INAPPROPRIATE AFFECT [None]
  - FAECAL INCONTINENCE [None]
  - PSYCHOMOTOR HYPERACTIVITY [None]
  - CONSTIPATION [None]
  - DYSPNOEA [None]
  - FATIGUE [None]
  - DYSPNOEA EXERTIONAL [None]
  - WEIGHT FLUCTUATION [None]
  - INSOMNIA [None]
  - CHEILITIS [None]
  - SOMNOLENCE [None]
  - ANAEMIA [None]
  - GAIT DISTURBANCE [None]
  - DIABETES MELLITUS [None]
  - PAIN IN EXTREMITY [None]
  - RHINORRHOEA [None]
  - DYSPHAGIA [None]
  - POLLAKIURIA [None]
